FAERS Safety Report 4569149-7 (Version None)
Quarter: 2005Q1

REPORT INFORMATION
  Report Type: 
  Country: None (occurrence: None)
  Receive Date: 20050201
  Receipt Date: 20050121
  Transmission Date: 20050727
  Serious: Yes (Death, Hospitalization)
  Sender: FDA-Public Use
  Company Number: 163-20785-04070607

PATIENT
  Age: 72 Year
  Sex: Female

DRUGS (10)
  1. THALOMID [Suspect]
     Indication: MULTIPLE MYELOMA
     Dosage: 100 MG, DAILY, ORAL
     Route: 048
     Dates: start: 20040719, end: 20040101
  2. TPN (TPN) [Concomitant]
  3. MORPHINE SULFATE [Concomitant]
  4. QUININE (QUININE) [Concomitant]
  5. ESTRACE [Concomitant]
  6. LEVOTHYROXINE SODIUM [Concomitant]
  7. ZANTAC [Concomitant]
  8. PROZAC [Concomitant]
  9. RESTORIL [Concomitant]
  10. ALBUTEROL [Concomitant]

REACTIONS (9)
  - CEREBRAL HAEMORRHAGE [None]
  - PARAESTHESIA [None]
  - PNEUMONIA [None]
  - PRURITUS [None]
  - RASH [None]
  - RENAL FAILURE [None]
  - SKIN ULCER [None]
  - SOMNOLENCE [None]
  - TUMOUR MARKER INCREASED [None]
